FAERS Safety Report 12909000 (Version 1)
Quarter: 2016Q4

REPORT INFORMATION
  Report Type: Spontaneous
  Country: US (occurrence: US)
  Receive Date: 20161103
  Receipt Date: 20161103
  Transmission Date: 20170207
  Serious: No
  Sender: FDA-Public Use
  Company Number: US-JAZZ-2016-US-016765

PATIENT
  Sex: Female

DRUGS (63)
  1. XYREM [Suspect]
     Active Substance: SODIUM OXYBATE
     Dosage: 4.5 G, BID
     Route: 048
     Dates: start: 201603
  2. METHYLCOBALAMIN. [Concomitant]
     Active Substance: METHYLCOBALAMIN
  3. AYGESTIN [Concomitant]
     Active Substance: NORETHINDRONE ACETATE
  4. GLUCOSAMINE + CHONDROITIN WITH MSM [Concomitant]
  5. NORTRIPTYLINE HCL [Concomitant]
     Active Substance: NORTRIPTYLINE HYDROCHLORIDE
  6. QNASL [Concomitant]
     Active Substance: BECLOMETHASONE DIPROPIONATE
  7. ZANTAC [Concomitant]
     Active Substance: RANITIDINE HYDROCHLORIDE
  8. IMODIUM A-D [Concomitant]
     Active Substance: LOPERAMIDE HYDROCHLORIDE
  9. GOLYTELY [Concomitant]
     Active Substance: POLYETHYLENE GLYCOL 3350\POTASSIUM CHLORIDE\SODIUM BICARBONATE\SODIUM CHLORIDE\SODIUM SULFATE ANHYDROUS
  10. GLUCOSAMINE AND CHONDROITIN [Concomitant]
     Active Substance: CHONDROITIN SULFATE (BOVINE)\GLUCOSAMINE HYDROCHLORIDE
  11. IMITREX [Concomitant]
     Active Substance: SUMATRIPTAN SUCCINATE
  12. GUAIFENESIN. [Concomitant]
     Active Substance: GUAIFENESIN
  13. QUERCETIN [Concomitant]
     Active Substance: QUERCETIN
  14. VITAMIN C [Concomitant]
     Active Substance: ASCORBIC ACID
  15. FLAXSEED [Concomitant]
     Active Substance: FLAX SEED
  16. METROCREAM [Concomitant]
     Active Substance: METRONIDAZOLE
  17. STRATTERA [Concomitant]
     Active Substance: ATOMOXETINE HYDROCHLORIDE
  18. ALLEGRA [Concomitant]
     Active Substance: FEXOFENADINE HYDROCHLORIDE
  19. DEXEDRINE [Concomitant]
     Active Substance: DEXTROAMPHETAMINE SULFATE
  20. BENADRYL ALLERGY [Concomitant]
     Active Substance: DIPHENHYDRAMINE HYDROCHLORIDE
  21. AZULFIDINE [Concomitant]
     Active Substance: SULFASALAZINE
  22. OMEGA-3 FATTY ACIDS [Concomitant]
     Active Substance: OMEGA-3 FATTY ACIDS
  23. DEXMETHYLPHENIDATE [Concomitant]
     Active Substance: DEXMETHYLPHENIDATE HYDROCHLORIDE
  24. ASTEPRO [Concomitant]
     Active Substance: AZELASTINE HYDROCHLORIDE
  25. BECLOMETHASONE [Concomitant]
     Active Substance: BECLOMETHASONE
  26. HYOSCYAMINE. [Concomitant]
     Active Substance: HYOSCYAMINE
  27. NEILMED SINUS RINSE [Concomitant]
     Active Substance: SODIUM BICARBONATE\SODIUM CHLORIDE
  28. TURMERIC [Concomitant]
     Active Substance: TURMERIC
  29. XYREM [Suspect]
     Active Substance: SODIUM OXYBATE
     Indication: CATAPLEXY
     Dosage: 2.25 G, BID
     Dates: start: 201301, end: 201302
  30. KETOCONAZOLE. [Suspect]
     Active Substance: KETOCONAZOLE
     Indication: PRODUCT USED FOR UNKNOWN INDICATION
     Route: 048
  31. FOCALIN [Concomitant]
     Active Substance: DEXMETHYLPHENIDATE HYDROCHLORIDE
  32. PRENATAL [Concomitant]
     Active Substance: VITAMINS
  33. EPINEPHRINE. [Concomitant]
     Active Substance: EPINEPHRINE
  34. LEVBID [Concomitant]
     Active Substance: HYOSCYAMINE SULFATE
  35. CRANBERRY. [Concomitant]
     Active Substance: CRANBERRY
  36. METROGEL [Concomitant]
     Active Substance: METRONIDAZOLE
  37. SYMBICORT [Concomitant]
     Active Substance: BUDESONIDE\FORMOTEROL FUMARATE DIHYDRATE
  38. XYREM [Suspect]
     Active Substance: SODIUM OXYBATE
     Dosage: DOSE ADJUSTMENTS
     Route: 048
     Dates: start: 201302, end: 201603
  39. PROTONIX [Concomitant]
     Active Substance: PANTOPRAZOLE SODIUM
  40. VITAMIN B12 [Concomitant]
     Active Substance: CYANOCOBALAMIN
  41. TOPAMAX [Concomitant]
     Active Substance: TOPIRAMATE
  42. NYSTATIN/TRIAMCINOLONE [Concomitant]
     Active Substance: NYSTATIN\TRIAMCINOLONE
  43. PRILOSEC [Concomitant]
     Active Substance: OMEPRAZOLE MAGNESIUM
  44. L-METHYLFOLATE [Concomitant]
  45. DEXTROAMPHETAMINE. [Concomitant]
     Active Substance: DEXTROAMPHETAMINE
  46. ALBUTEROL HFA [Concomitant]
     Active Substance: ALBUTEROL SULFATE
  47. FLEXERIL [Concomitant]
     Active Substance: CYCLOBENZAPRINE HYDROCHLORIDE
  48. BUPROPION HCL [Concomitant]
     Active Substance: BUPROPION HYDROCHLORIDE
  49. XYREM [Suspect]
     Active Substance: SODIUM OXYBATE
     Indication: NARCOLEPSY
     Dosage: 2.25 G, BID
     Route: 048
     Dates: start: 200702, end: 2007
  50. ADVAIR HFA [Concomitant]
     Active Substance: FLUTICASONE PROPIONATE\SALMETEROL XINAFOATE
  51. AZELASTINE [Concomitant]
     Active Substance: AZELASTINE
  52. PROVIGIL [Concomitant]
     Active Substance: MODAFINIL
  53. CYCLOBENZAPRINE [Concomitant]
     Active Substance: CYCLOBENZAPRINE
  54. ASTELIN [Concomitant]
     Active Substance: AZELASTINE HYDROCHLORIDE
  55. SKELAXIN [Concomitant]
     Active Substance: METAXALONE
  56. SULFASALAZINE. [Concomitant]
     Active Substance: SULFASALAZINE
  57. MESALAMINE. [Concomitant]
     Active Substance: MESALAMINE
  58. GABAPENTIN. [Suspect]
     Active Substance: GABAPENTIN
     Indication: PRODUCT USED FOR UNKNOWN INDICATION
     Route: 048
  59. FOLIC ACID. [Concomitant]
     Active Substance: FOLIC ACID
  60. PROBIOTIC ACIDOPHILUS [Concomitant]
     Active Substance: LACTOBACILLUS ACIDOPHILUS
  61. XYZAL [Concomitant]
     Active Substance: LEVOCETIRIZINE DIHYDROCHLORIDE
  62. RESTASIS [Concomitant]
     Active Substance: CYCLOSPORINE
  63. MAXALT [Concomitant]
     Active Substance: RIZATRIPTAN BENZOATE

REACTIONS (13)
  - Feeling abnormal [Not Recovered/Not Resolved]
  - Drug intolerance [Not Recovered/Not Resolved]
  - Rash [Unknown]
  - Unevaluable event [Not Recovered/Not Resolved]
  - Epistaxis [Not Recovered/Not Resolved]
  - Methylenetetrahydrofolate reductase deficiency [Unknown]
  - Nasal dryness [Not Recovered/Not Resolved]
  - Visual impairment [Not Recovered/Not Resolved]
  - Insomnia [Not Recovered/Not Resolved]
  - Condition aggravated [Not Recovered/Not Resolved]
  - Migraine [Not Recovered/Not Resolved]
  - Anxiety [Not Recovered/Not Resolved]
  - Strabismus [Not Recovered/Not Resolved]
